FAERS Safety Report 23352011 (Version 1)
Quarter: 2023Q4

REPORT INFORMATION
  Report Type: Spontaneous
  Country: US (occurrence: US)
  Receive Date: 20231229
  Receipt Date: 20231229
  Transmission Date: 20240110
  Serious: Yes (Other)
  Sender: FDA-Public Use
  Company Number: US-SUN PHARMACEUTICAL INDUSTRIES LTD-2023R1-425875

PATIENT
  Sex: Male

DRUGS (5)
  1. FUROSEMIDE [Suspect]
     Active Substance: FUROSEMIDE
     Indication: Hypercalcaemia
     Dosage: UNK
     Route: 064
  2. PREDNISONE [Suspect]
     Active Substance: PREDNISONE
     Indication: Nausea
     Dosage: UNK
     Route: 064
  3. PREDNISONE [Suspect]
     Active Substance: PREDNISONE
     Indication: Vomiting
  4. CALCITONIN [Suspect]
     Active Substance: CALCITONIN
     Indication: Hypercalcaemia
     Dosage: UNK
     Route: 064
  5. DEXAMETHASONE [Concomitant]
     Active Substance: DEXAMETHASONE
     Indication: Hypercalcaemia
     Dosage: UNK
     Route: 064

REACTIONS (2)
  - Premature baby [Unknown]
  - Foetal exposure during pregnancy [Unknown]
